FAERS Safety Report 11664268 (Version 1)
Quarter: 2015Q4

REPORT INFORMATION
  Report Type: Spontaneous
  Country: US (occurrence: US)
  Receive Date: 20151027
  Receipt Date: 20151027
  Transmission Date: 20160304
  Serious: No
  Sender: FDA-Public Use
  Company Number: PHEH2015US002772

PATIENT
  Sex: Male
  Weight: 58.96 kg

DRUGS (2)
  1. EXJADE [Suspect]
     Active Substance: DEFERASIROX
     Indication: IRON OVERLOAD
     Dosage: 2 DF, 2X/DAY
     Route: 065
  2. EXJADE [Suspect]
     Active Substance: DEFERASIROX
     Dosage: 250 MG, 2X AM/2XPM
     Route: 065
     Dates: start: 20141201

REACTIONS (2)
  - Blood iron increased [Unknown]
  - Serum ferritin increased [Unknown]
